FAERS Safety Report 7706462-6 (Version None)
Quarter: 2011Q3

REPORT INFORMATION
  Report Type: 
  Country: None (occurrence: None)
  Receive Date: 20110824
  Receipt Date: 20110816
  Transmission Date: 20111222
  Serious: Yes (Hospitalization)
  Sender: FDA-Public Use
  Company Number: CA-JNJFOC-20110808093

PATIENT
  Sex: Female

DRUGS (12)
  1. FERROUS SULFATE TAB [Concomitant]
  2. PREDNISONE [Concomitant]
  3. OMEPRAZOLE [Concomitant]
  4. FOLIC ACID [Concomitant]
  5. REMICADE [Suspect]
     Indication: CROHN'S DISEASE
     Route: 042
     Dates: start: 20110201
  6. RAMIPRIL [Concomitant]
  7. GRAVOL TAB [Concomitant]
  8. VITAMIN B-12 [Concomitant]
  9. PERCOCET [Concomitant]
  10. COUMADIN [Concomitant]
  11. VITAMIN D [Concomitant]
  12. SLOW-K [Concomitant]

REACTIONS (2)
  - BLOOD MAGNESIUM DECREASED [None]
  - SYNCOPE [None]
